FAERS Safety Report 24258772 (Version 1)
Quarter: 2024Q3

REPORT INFORMATION
  Report Type: Spontaneous
  Country: US (occurrence: None)
  Receive Date: 20240827
  Receipt Date: 20240827
  Transmission Date: 20241017
  Serious: Yes (Hospitalization, Other)
  Sender: Public
  Company Number: None

PATIENT
  Age: 66 Year
  Sex: Female

DRUGS (1)
  1. LENALIDOMIDE [Suspect]
     Active Substance: LENALIDOMIDE
     Indication: Plasma cell myeloma
     Dosage: 10MG QD ORAL??STOP THERAPY: ON HOLD
     Route: 048
     Dates: start: 20170426

REACTIONS (3)
  - Dyspnoea exertional [None]
  - Cardiac failure [None]
  - Therapy cessation [None]

NARRATIVE: CASE EVENT DATE: 20240827
